FAERS Safety Report 5577498-9 (Version None)
Quarter: 2007Q4

REPORT INFORMATION
  Report Type: 
  Country: None (occurrence: None)
  Receive Date: 20071228
  Receipt Date: 20071218
  Transmission Date: 20080405
  Serious: Yes (Death)
  Sender: FDA-Public Use
  Company Number: JP-PFIZER INC-2007106882

PATIENT
  Age: 73 Year
  Sex: Female

DRUGS (4)
  1. ZYVOX [Suspect]
     Indication: STAPHYLOCOCCAL OSTEOMYELITIS
     Route: 042
     Dates: start: 20071130, end: 20071201
  2. VANCOMYCIN [Concomitant]
  3. TARGOCID [Concomitant]
  4. HABEKACIN [Concomitant]

REACTIONS (2)
  - DISSEMINATED INTRAVASCULAR COAGULATION [None]
  - STAPHYLOCOCCAL OSTEOMYELITIS [None]
